FAERS Safety Report 7415414-5 (Version None)
Quarter: 2011Q2

REPORT INFORMATION
  Report Type: 
  Country: None (occurrence: None)
  Receive Date: 20110414
  Receipt Date: 20110404
  Transmission Date: 20111010
  Serious: Yes (Hospitalization)
  Sender: FDA-Public Use
  Company Number: US-JNJFOC-20110203579

PATIENT
  Sex: Male
  Weight: 99.79 kg

DRUGS (4)
  1. AMLODIPINE [Concomitant]
     Indication: HYPERTENSION
     Route: 048
  2. HYDROCHLOROTHIAZIDE [Concomitant]
     Indication: HYPERTENSION
     Dosage: 40-25MGS TABLETS
     Route: 048
  3. FENTANYL-100 [Suspect]
     Indication: ARTHRITIS
     Route: 062
  4. FENTANYL-100 [Suspect]
     Indication: BACK PAIN
     Route: 062

REACTIONS (4)
  - ARTHRITIS [None]
  - DRUG INEFFECTIVE [None]
  - PRODUCT QUALITY ISSUE [None]
  - WITHDRAWAL SYNDROME [None]
